FAERS Safety Report 24139869 (Version 1)
Quarter: 2024Q3

REPORT INFORMATION
  Report Type: Spontaneous
  Country: US (occurrence: US)
  Receive Date: 20240726
  Receipt Date: 20240726
  Transmission Date: 20241016
  Serious: No
  Sender: TEVA
  Company Number: US-TEVA-VS-3224881

PATIENT
  Age: 64 Year
  Sex: Female

DRUGS (1)
  1. AMOXICILLIN AND CLAVULANATE POTASSIUM [Suspect]
     Active Substance: AMOXICILLIN\CLAVULANATE POTASSIUM
     Indication: Nasopharyngitis
     Dosage: 400-57 MG-MG
     Route: 065
     Dates: start: 20240509

REACTIONS (4)
  - Dysphagia [Unknown]
  - Pharyngeal erythema [Unknown]
  - Recalled product administered [Unknown]
  - Emergency care [Recovered/Resolved]

NARRATIVE: CASE EVENT DATE: 20240509
